FAERS Safety Report 10421160 (Version 2)
Quarter: 2014Q3

REPORT INFORMATION
  Report Type: Spontaneous
  Country: US (occurrence: US)
  Receive Date: 20140830
  Receipt Date: 20140830
  Transmission Date: 20150326
  Serious: Yes (Other)
  Sender: FDA-Public Use
  Company Number: US-AUROBINDO PHARMA LTD, UK-AUR-APL-2014-07172

PATIENT
  Sex: Male

DRUGS (1)
  1. TRAMADOL [Suspect]
     Active Substance: TRAMADOL
     Indication: NECK PAIN
     Dosage: UNK
     Route: 065

REACTIONS (3)
  - Therapeutic response changed [Unknown]
  - Drug dependence [Recovered/Resolved]
  - Fatigue [Recovering/Resolving]
